FAERS Safety Report 6372829-4 (Version None)
Quarter: 2009Q3

REPORT INFORMATION
  Report Type: 
  Country: None (occurrence: None)
  Receive Date: 20090924
  Receipt Date: 20090417
  Transmission Date: 20100115
  Serious: No
  Sender: FDA-Public Use
  Company Number: US-ASTRAZENECA-2008UW26506

PATIENT
  Age: 309 Month
  Sex: Male
  Weight: 83.9 kg

DRUGS (8)
  1. SEROQUEL [Suspect]
     Indication: BIPOLAR DISORDER
     Dosage: 25 TO 400 MG
     Route: 048
     Dates: start: 20050601, end: 20071001
  2. ABILIFY [Concomitant]
     Dosage: 5 TO 30 MG
     Dates: start: 20080101
  3. GEODON [Concomitant]
     Dates: start: 20071101, end: 20071201
  4. DEPAKOTE [Concomitant]
     Dosage: 500 TO 1500 MG
     Dates: start: 20030701
  5. CLONAZEPAM [Concomitant]
     Dosage: 0.5 TO 1 MG
     Dates: start: 20050501, end: 20050601
  6. CLONAZEPAM [Concomitant]
     Dosage: 0.5 TO 1 MG
     Dates: start: 20070901, end: 20071201
  7. ZOLOFT [Concomitant]
     Dosage: 25 TO 100 MG
     Dates: start: 20050601, end: 20060501
  8. TRAZODONE [Concomitant]
     Dosage: 300 MG
     Dates: start: 20070101, end: 20071201

REACTIONS (8)
  - BLOOD CHOLESTEROL INCREASED [None]
  - DIABETES MELLITUS [None]
  - DIZZINESS [None]
  - HEADACHE [None]
  - INSOMNIA [None]
  - NAUSEA [None]
  - OBESITY [None]
  - VISUAL ACUITY REDUCED [None]
